FAERS Safety Report 8099390-0 (Version None)
Quarter: 2012Q1

REPORT INFORMATION
  Report Type: 
  Country: None (occurrence: None)
  Receive Date: 20120129
  Receipt Date: 20110914
  Transmission Date: 20120608
  Serious: No
  Sender: FDA-Public Use
  Company Number: US-ABBOTT-11P-163-0855055-00

PATIENT
  Sex: Female
  Weight: 59.02 kg

DRUGS (8)
  1. SEASONIQUE [Concomitant]
     Indication: PRODUCT USED FOR UNKNOWN INDICATION
  2. HUMIRA [Suspect]
     Indication: CROHN'S DISEASE
     Dosage: FOUR INJECTIONS ON THE FIRST DAY
     Dates: start: 20110826, end: 20110826
  3. PREDNISONE TAB [Suspect]
     Indication: PRODUCT USED FOR UNKNOWN INDICATION
  4. AMITRIPTYLINE HCL [Concomitant]
     Indication: PRODUCT USED FOR UNKNOWN INDICATION
  5. HUMIRA [Suspect]
     Dosage: TWO INJECTIONS
  6. MULTI-VITAMINS [Concomitant]
     Indication: PRODUCT USED FOR UNKNOWN INDICATION
  7. FISH OIL [Concomitant]
     Indication: PRODUCT USED FOR UNKNOWN INDICATION
  8. BIOTIN [Concomitant]
     Indication: PRODUCT USED FOR UNKNOWN INDICATION

REACTIONS (4)
  - FATIGUE [None]
  - HEADACHE [None]
  - INJECTION SITE RASH [None]
  - ARTHRALGIA [None]
